FAERS Safety Report 8760957 (Version 1)
Quarter: 2012Q4

REPORT INFORMATION
  Report Type: Report from Study
  Country: JP (occurrence: JP)
  Receive Date: 20120830
  Receipt Date: 20120830
  Transmission Date: 20130627
  Serious: Yes (Hospitalization)
  Sender: FDA-Public Use
  Company Number: JP-VERTEX PHARMACEUTICAL INC.-AE-2012-004058

PATIENT
  Age: 57 Year
  Sex: Female

DRUGS (14)
  1. VX-950 [Suspect]
     Indication: HEPATITIS C
     Dosage: 2250 mg, qd
     Route: 048
     Dates: start: 20120123, end: 20120125
  2. VX-950 [Suspect]
     Dosage: 1500 mg, qd
     Dates: start: 20120201, end: 20120316
  3. REBETOL [Suspect]
     Indication: HEPATITIS C
     Dosage: 600 mg, qd
     Route: 048
     Dates: start: 20120123, end: 20120215
  4. REBETOL [Suspect]
     Dosage: 200 mg, qd
     Route: 048
     Dates: start: 20120216, end: 20120323
  5. PEGINTRON                          /01543001/ [Suspect]
     Indication: HEPATITIS C
     Dosage: 1.5 UNK, UNK
     Route: 058
     Dates: start: 20120123, end: 20120323
  6. URSO                               /00465701/ [Concomitant]
     Dosage: 300 mg, qd
     Route: 048
  7. GASTER [Concomitant]
     Dosage: 40 mg, qd
     Route: 048
     Dates: end: 20120126
  8. NABOAL                             /00372302/ [Concomitant]
     Dosage: 2 DF, prn
     Route: 048
     Dates: start: 20120123, end: 20120229
  9. TAKEPRON [Concomitant]
     Dosage: 30 mg, qd
     Route: 048
     Dates: start: 20120126
  10. VOLTAREN                           /00372301/ [Concomitant]
     Dosage: 2 DF, prn
     Route: 048
     Dates: start: 20120302, end: 20120308
  11. GASMOTIN [Concomitant]
     Dosage: 6 DF, qd
     Route: 048
     Dates: start: 20120220
  12. ALESION [Concomitant]
     Dosage: 10 mg, qd
     Route: 048
     Dates: start: 20120130
  13. ALLEGRA [Concomitant]
     Dosage: 120 mg, qd
     Route: 048
     Dates: end: 20120308
  14. ALOSENN                            /00476901/ [Concomitant]
     Dosage: 0.5 g, qd
     Route: 048

REACTIONS (1)
  - Depressive symptom [Recovered/Resolved]
